FAERS Safety Report 12621036 (Version 2)
Quarter: 2016Q3

REPORT INFORMATION
  Report Type: Spontaneous
  Country: GB (occurrence: GB)
  Receive Date: 20160804
  Receipt Date: 20160809
  Transmission Date: 20161109
  Serious: Yes (Other)
  Sender: FDA-Public Use
  Company Number: GB-ELI_LILLY_AND_COMPANY-GB201601007248

PATIENT
  Age: 82 Year
  Sex: Female

DRUGS (30)
  1. CLOPIDOGREL [Concomitant]
     Active Substance: CLOPIDOGREL BISULFATE
  2. COLECALCIFEROL [Concomitant]
     Active Substance: CHOLECALCIFEROL
     Dosage: 800 U, UNKNOWN
  3. HYLO TEAR [Concomitant]
  4. LINAGLIPTIN [Concomitant]
     Active Substance: LINAGLIPTIN
     Dosage: UNK
  5. PIROXICAM. [Concomitant]
     Active Substance: PIROXICAM
  6. FORCEVAL                           /07405301/ [Concomitant]
     Active Substance: FOLIC ACID\IRON\MINERALS\VITAMINS
  7. BUMETANIDE. [Concomitant]
     Active Substance: BUMETANIDE
     Dosage: 1 UG, EACH MORNING
     Route: 065
  8. BUPRENORPHINE. [Concomitant]
     Active Substance: BUPRENORPHINE
     Dosage: 20 MG/HR
     Route: 065
  9. MACROGOL COMP [Concomitant]
  10. HUMALOG MIX50/50 [Suspect]
     Active Substance: INSULIN LISPRO
     Indication: TYPE 2 DIABETES MELLITUS
     Dosage: UNK UNK, TID
     Route: 065
  11. COCODAMOL [Concomitant]
     Active Substance: ACETAMINOPHEN\CODEINE PHOSPHATE
  12. EPADERM [Concomitant]
     Active Substance: MINERAL OIL\PETROLATUM\WAX, EMULSIFYING
  13. GLUCOGEL [Concomitant]
  14. LID CARE [Concomitant]
  15. PANTOPRAZOLE [Concomitant]
     Active Substance: PANTOPRAZOLE SODIUM
  16. VITA POS [Concomitant]
     Active Substance: VITAMIN A PALMITATE
  17. BISOPROLOL [Concomitant]
     Active Substance: BISOPROLOL
     Dosage: 7.5 MG, QD
     Route: 065
  18. DIFFLAM [Concomitant]
     Active Substance: BENZYDAMINE HYDROCHLORIDE
  19. DORZOLAMIDE AND TIMOLOL [Concomitant]
     Active Substance: DORZOLAMIDE\TIMOLOL
  20. PARACETAMOL [Concomitant]
     Active Substance: ACETAMINOPHEN
  21. OMACOR [Concomitant]
     Active Substance: OMEGA-3-ACID ETHYL ESTERS
  22. PREDNISOLONE. [Concomitant]
     Active Substance: PREDNISOLONE
     Dosage: 5 UG, QD
  23. HUMALOG MIX50/50 [Suspect]
     Active Substance: INSULIN LISPRO
     Dosage: UNK UNK, TID
     Route: 065
  24. BIMATOPROST. [Concomitant]
     Active Substance: BIMATOPROST
     Dosage: UNK
  25. HUMALOG MIX50/50 [Suspect]
     Active Substance: INSULIN LISPRO
     Indication: TYPE 2 DIABETES MELLITUS
     Dosage: UNK UNK, TID
     Route: 065
  26. EZETIMIBE. [Concomitant]
     Active Substance: EZETIMIBE
  27. GLYCERYL TRINITRATE [Concomitant]
     Active Substance: NITROGLYCERIN
  28. LIDOCAINE. [Concomitant]
     Active Substance: LIDOCAINE
  29. MEFIX [Concomitant]
  30. CANDESARTAN [Concomitant]
     Active Substance: CANDESARTAN

REACTIONS (12)
  - Weight decreased [Unknown]
  - Fall [Unknown]
  - Blood glucose decreased [Unknown]
  - Blood glucose increased [Unknown]
  - Drug ineffective [Unknown]
  - Blood glucose increased [Unknown]
  - End stage renal disease [Unknown]
  - Decreased appetite [Unknown]
  - Visual acuity reduced [Unknown]
  - Eye pain [Recovered/Resolved]
  - Blood glucose increased [Unknown]
  - Blood glucose abnormal [Not Recovered/Not Resolved]

NARRATIVE: CASE EVENT DATE: 20160721
